FAERS Safety Report 13837232 (Version 1)
Quarter: 2017Q3

REPORT INFORMATION
  Report Type: Spontaneous
  Country: US (occurrence: US)
  Receive Date: 20170804
  Receipt Date: 20170804
  Transmission Date: 20171127
  Serious: Yes (Disabling)
  Sender: FDA-Public Use
  Company Number: US-ROCHE-1060113

PATIENT
  Age: 68 Year

DRUGS (2)
  1. BONIVA [Suspect]
     Active Substance: IBANDRONATE SODIUM
     Indication: OSTEOPOROSIS
     Route: 042
     Dates: start: 20120321
  2. BONIVA [Suspect]
     Active Substance: IBANDRONATE SODIUM
     Indication: OSTEOPOROSIS
     Route: 048
     Dates: start: 2000

REACTIONS (11)
  - Swelling [Recovered/Resolved]
  - Paraesthesia [Not Recovered/Not Resolved]
  - Abdominal pain upper [Unknown]
  - Nausea [Not Recovered/Not Resolved]
  - Bone density decreased [Recovered/Resolved]
  - Pain in extremity [Unknown]
  - Sensation of foreign body [Not Recovered/Not Resolved]
  - Influenza like illness [Unknown]
  - Injection site pain [Unknown]
  - Arthralgia [Unknown]
  - Pain [Not Recovered/Not Resolved]
